FAERS Safety Report 15688858 (Version 4)
Quarter: 2019Q1

REPORT INFORMATION
  Report Type: Spontaneous
  Country: FR (occurrence: FR)
  Receive Date: 20181205
  Receipt Date: 20190128
  Transmission Date: 20190417
  Serious: Yes (Other)
  Sender: FDA-Public Use
  Company Number: FR-AUROBINDO-AUR-APL-2018-058794

PATIENT
  Age: 13 Year
  Sex: Female

DRUGS (7)
  1. MYCOPHENOLATE MOFETIL. [Suspect]
     Active Substance: MYCOPHENOLATE MOFETIL
     Indication: DERMATOMYOSITIS
     Dosage: UNK
     Route: 065
  2. PREDNISONE. [Suspect]
     Active Substance: PREDNISONE
     Dosage: 0.1 MILLIGRAM/KILOGRAM, ONCE A DAY
     Route: 065
  3. PREDNISONE. [Suspect]
     Active Substance: PREDNISONE
     Indication: DERMATOMYOSITIS
     Dosage: 0.9 MILLIGRAM/KILOGRAM, ONCE A DAY (0.9 MG/KG, QD)
     Route: 065
  4. PREDNISONE. [Suspect]
     Active Substance: PREDNISONE
     Dosage: 0.5 MILLIGRAM/KILOGRAM, ONCE A DAY
     Route: 065
  5. PREDNISONE. [Suspect]
     Active Substance: PREDNISONE
     Dosage: 0.3 MILLIGRAM/KILOGRAM, ONCE A DAY (0.3 MG/KG, QD)
     Route: 065
  6. PREDNISONE. [Suspect]
     Active Substance: PREDNISONE
     Dosage: 1.2 MILLIGRAM/KILOGRAM, ONCE A DAY (1.2 MG/KG, QD)
     Route: 065
  7. RITUXIMAB. [Suspect]
     Active Substance: RITUXIMAB
     Indication: DERMATOMYOSITIS
     Dosage: 375 MILLIGRAM/SQ. METER, FOR 3 WEEKS
     Route: 065

REACTIONS (6)
  - Drug dependence [Unknown]
  - Dermatomyositis [Unknown]
  - Condition aggravated [Not Recovered/Not Resolved]
  - Drug ineffective [Unknown]
  - Disease recurrence [Unknown]
  - Product use in unapproved indication [Unknown]
